FAERS Safety Report 5637870-5 (Version None)
Quarter: 2008Q1

REPORT INFORMATION
  Report Type: 
  Country: None (occurrence: None)
  Receive Date: 20080222
  Receipt Date: 20080222
  Transmission Date: 20080703
  Serious: Yes (Other)
  Sender: FDA-Public Use
  Company Number: None

PATIENT

DRUGS (2)
  1. DURAGESIC-100 [Suspect]
     Indication: PAIN
     Dosage: 1 PATCH Q72 TRANSDERMAL
     Route: 062
     Dates: start: 20080206, end: 20080208
  2. LIDOCAINE [Suspect]
     Indication: PAIN
     Dosage: 1 PATCH Q24 TRANSDERMAL
     Route: 062
     Dates: start: 20080206, end: 20080207

REACTIONS (4)
  - INCORRECT DRUG ADMINISTRATION DURATION [None]
  - MEDICATION ERROR [None]
  - PAIN [None]
  - PHARMACEUTICAL PRODUCT COMPLAINT [None]
